FAERS Safety Report 6268744-7 (Version None)
Quarter: 2009Q3

REPORT INFORMATION
  Report Type: 
  Country: None (occurrence: None)
  Receive Date: 20090715
  Receipt Date: 20090701
  Transmission Date: 20100115
  Serious: Yes (Other)
  Sender: FDA-Public Use
  Company Number: FR-ROCHE-642164

PATIENT
  Age: 52 Year
  Sex: Male

DRUGS (1)
  1. ROVALCYTE [Suspect]
     Indication: ORGAN TRANSPLANT
     Route: 065

REACTIONS (1)
  - RENAL FAILURE ACUTE [None]
